FAERS Safety Report 13305921 (Version 1)
Quarter: 2017Q1

REPORT INFORMATION
  Report Type: Spontaneous
  Country: LK (occurrence: LK)
  Receive Date: 20170308
  Receipt Date: 20170308
  Transmission Date: 20170428
  Serious: Yes (Hospitalization)
  Sender: FDA-Public Use
  Company Number: LK-EDENBRIDGE PHARMACEUTICALS, LLC-LK-2017EDE000005

PATIENT
  Age: 51 Year
  Sex: Male

DRUGS (3)
  1. CHOLESTYRAMINE. [Concomitant]
     Active Substance: CHOLESTYRAMINE
     Indication: CHOLESTASIS
     Dosage: 5 G, TID
  2. URSODEOXYCHOLIC ACID [Concomitant]
     Active Substance: URSODIOL
     Indication: CHOLESTASIS
     Dosage: 300 MG, TID
  3. PREDNISOLONE SODIUM PHOSPHATE. [Suspect]
     Active Substance: PREDNISOLONE SODIUM PHOSPHATE
     Indication: CHOLESTASIS
     Dosage: 40 MG, QD
     Route: 048

REACTIONS (1)
  - Cholangitis [Recovered/Resolved]
